FAERS Safety Report 10080337 (Version 1)
Quarter: 2014Q2

REPORT INFORMATION
  Report Type: Spontaneous
  Country: US (occurrence: US)
  Receive Date: 20140415
  Receipt Date: 20140415
  Transmission Date: 20141212
  Serious: No
  Sender: FDA-Public Use
  Company Number: US-009507513-1403USA014649

PATIENT
  Age: 8 Year
  Sex: Female

DRUGS (3)
  1. NASONEX [Suspect]
     Indication: SINUSITIS
     Dosage: 2 DF, QD
     Route: 045
     Dates: start: 20140325, end: 20140327
  2. PATANASE [Concomitant]
  3. QVAR [Concomitant]

REACTIONS (2)
  - Pain in extremity [Not Recovered/Not Resolved]
  - Abdominal pain upper [Not Recovered/Not Resolved]
